FAERS Safety Report 18508427 (Version 7)
Quarter: 2024Q3

REPORT INFORMATION
  Report Type: Spontaneous
  Country: PK (occurrence: PK)
  Receive Date: 20201116
  Receipt Date: 20240917
  Transmission Date: 20241016
  Serious: Yes (Other)
  Sender: AMGEN
  Company Number: PK-PFIZER INC-2020181370

PATIENT
  Age: 59 Year
  Sex: Male

DRUGS (36)
  1. ENBREL [Suspect]
     Active Substance: ETANERCEPT
     Indication: Spondyloarthropathy
     Dosage: 50 MG, ONCE WEEKLY
     Route: 058
     Dates: start: 202004
  2. ENBREL [Suspect]
     Active Substance: ETANERCEPT
     Dosage: 50 MG, EVERY 10 DAYS
     Route: 058
     Dates: start: 2020
  3. ENBREL [Suspect]
     Active Substance: ETANERCEPT
     Dosage: 50 MG, ONCE EVERY WEEK TO 10 DAYS
     Route: 058
     Dates: start: 20200504
  4. ENBREL [Suspect]
     Active Substance: ETANERCEPT
     Dosage: 50MG + ONCE EVERY 2 WEEKS IN JAN-FEB AND 3 WEEKS IN MARCH-APRIL
     Route: 058
  5. ENBREL [Suspect]
     Active Substance: ETANERCEPT
     Dosage: 50 MG, ONCE EVERY 2 WEEKS (FOR TWO MONTHS) THEN 3 WEEKS
     Route: 058
     Dates: start: 202301
  6. ENBREL [Suspect]
     Active Substance: ETANERCEPT
     Dosage: 50 MG EVERY 3 WEEKS
     Route: 058
     Dates: start: 202303
  7. XCEPT [Concomitant]
     Dosage: 15 MG
     Route: 065
     Dates: start: 2017
  8. SERT [Concomitant]
     Dosage: 50 MG, DAILY
     Route: 065
     Dates: start: 2020
  9. FOLIC ACID [Concomitant]
     Active Substance: FOLIC ACID
     Dosage: 5 MG, MON TUE WED, EVERY SAT AND SUN CONTINUE
     Route: 065
     Dates: start: 2019
  10. FOLIC ACID [Concomitant]
     Active Substance: FOLIC ACID
     Dosage: 5 MG, MON TUE. CONTINUE EVERY SATURDAY AND SUNDAY
  11. SULFASALAZINE [Concomitant]
     Active Substance: SULFASALAZINE
     Dosage: 500 MILLIGRAM, 2+2 MORNING AND EVENING TO CONTINUE
     Route: 065
  12. SULFASALAZINE [Concomitant]
     Active Substance: SULFASALAZINE
     Dosage: 1+0+1 (500 MG) (AS REPORTED)
  13. SULFASALAZINE [Concomitant]
     Active Substance: SULFASALAZINE
     Dosage: 500 MG, 1+1. 1 IN MORNING 1 IN EVENING
  14. PANADOL [Concomitant]
     Active Substance: ACETAMINOPHEN
     Indication: Pain
     Dosage: USE THIS 2+2+2 IF PAIN
     Route: 065
  15. PANADOL [Concomitant]
     Active Substance: ACETAMINOPHEN
     Dosage: SOS (AS REPORTED)
     Route: 065
  16. ETORICOXIB [Concomitant]
     Active Substance: ETORICOXIB
     Indication: Pain
     Dosage: 60 MG, 1X/DAY
     Route: 065
  17. ETORICOXIB [Concomitant]
     Active Substance: ETORICOXIB
     Dosage: 120 MG, 1X/DAY
     Route: 065
  18. SUNVITE [Concomitant]
     Dosage: 1 INJECTION MIX WITH WATER AND DRINK, REPEAT AFTER 4 MONTHS
     Route: 065
  19. SUNVITE [Concomitant]
     Dosage: 1 IN 2 MONTHS
     Route: 065
  20. SUNVITE [Concomitant]
     Dosage: 1 INJ IN 4 MONTHS
  21. SUNVITE [Concomitant]
     Dosage: 1 INJECTIONS. TAKE IT WITH MILK OR WATER, DRINK THE INJECTION AFTER EVERY 4 MONTHS
  22. DICLOFENAC SODIUM [Concomitant]
     Active Substance: DICLOFENAC\DICLOFENAC SODIUM
     Indication: Pain
     Dosage: 100 MG, 1X/DAY
     Route: 065
  23. Risek [Concomitant]
     Indication: Abdominal discomfort
     Dosage: 40 MILLIGRAM, 40 MG BEFORE BREAKFAST IF TAKING STRONG PAINKILLER, WITH PAIN MEDICINE OR IN CASE OF S
     Route: 065
  24. CALVAN [Concomitant]
     Dosage: ONE DAILY
     Route: 065
  25. IRBESARTAN [Concomitant]
     Active Substance: IRBESARTAN
     Indication: Hypotension
     Dosage: 150 MG
     Route: 065
  26. NUBEROL [Concomitant]
     Dosage: UNK
  27. Zee [Concomitant]
     Dosage: UNK
  28. Zeegap [Concomitant]
     Dosage: 25 MG AT NIGHT
  29. BOSENTAN [Concomitant]
     Active Substance: BOSENTAN
     Dosage: 62.5 MG, 1 DAILY FOR 2 WEEKS
  30. ACECLOFENAC [Concomitant]
     Active Substance: ACECLOFENAC
     Indication: Pain
     Dosage: 100 MG, 1+1 FOR 7 DAY 1 A DAY, ONLY INCASE OF EXTREME PAIN OCCASIONALLY AFTER MEAL
  31. RISEK INSTA [Concomitant]
     Indication: Pain
     Dosage: 40 MG, 1 BEFORE BREAKFAST
     Route: 065
  32. RISEK INSTA [Concomitant]
     Indication: Abdominal pain upper
     Dosage: UNK
  33. ONDANSETRON [Concomitant]
     Active Substance: ONDANSETRON
     Indication: Bone disorder
     Dosage: 1 FOR 2 MONTHS, EVERY DAY CONTINUE
  34. INDROP D [Concomitant]
     Dosage: 1 DF, MONTHLY (EVERY 4 MONTHS)
  35. Osent [Concomitant]
     Indication: Bone disorder
     Dosage: IN WINTER MONTHS
  36. SULFASALAZINE [Concomitant]
     Active Substance: SULFASALAZINE
     Dosage: 500MG 2+2 MORNING AND EVENING CONTINUE

REACTIONS (11)
  - COVID-19 [Recovered/Resolved]
  - Osteoarthritis [Unknown]
  - Condition aggravated [Unknown]
  - Rash [Unknown]
  - Blood pressure increased [Unknown]
  - Heart rate increased [Unknown]
  - Weight increased [Unknown]
  - Hypotension [Unknown]
  - Pain [Unknown]
  - Drug ineffective [Unknown]
  - Off label use [Unknown]

NARRATIVE: CASE EVENT DATE: 20200101
